FAERS Safety Report 20360041 (Version 1)
Quarter: 2022Q1

REPORT INFORMATION
  Report Type: Spontaneous
  Country: US (occurrence: US)
  Receive Date: 20220121
  Receipt Date: 20220121
  Transmission Date: 20220423
  Serious: Yes (Other)
  Sender: FDA-Public Use
  Company Number: US-SUN PHARMACEUTICAL INDUSTRIES LTD-2022R1-323585

PATIENT
  Age: 27 Year
  Sex: Female

DRUGS (3)
  1. BACLOFEN [Suspect]
     Active Substance: BACLOFEN
     Indication: Muscle spasticity
     Dosage: UNK
     Route: 037
  2. BACLOFEN [Suspect]
     Active Substance: BACLOFEN
     Indication: Dystonia
     Dosage: UNK (DOSING INCREASES)
     Route: 037
  3. BACLOFEN [Suspect]
     Active Substance: BACLOFEN
     Dosage: 1968.8 MICROGRAM, DAILY (AT CONCENTRATION OF 2,000 MCG/DL)
     Route: 037

REACTIONS (4)
  - Therapy partial responder [Unknown]
  - Lethargy [Recovering/Resolving]
  - Decreased appetite [Recovering/Resolving]
  - Disorientation [Recovering/Resolving]
